FAERS Safety Report 4753524-1 (Version None)
Quarter: 2005Q3

REPORT INFORMATION
  Report Type: 
  Country: None (occurrence: None)
  Receive Date: 20050826
  Receipt Date: 20050802
  Transmission Date: 20060218
  Serious: Yes (Life-Threatening, Hospitalization)
  Sender: FDA-Public Use
  Company Number: AT-AMGEN-UK145338

PATIENT
  Sex: Female
  Weight: 76 kg

DRUGS (2)
  1. PALIFERMIN [Suspect]
     Indication: MUCOSAL INFLAMMATION
     Route: 042
     Dates: start: 20050728
  2. CARMUSTINE [Suspect]
     Route: 042
     Dates: start: 20050801, end: 20050801

REACTIONS (3)
  - CARDIOGENIC SHOCK [None]
  - GINGIVAL SWELLING [None]
  - SWELLING FACE [None]
